FAERS Safety Report 6900363-9 (Version None)
Quarter: 2010Q3

REPORT INFORMATION
  Report Type: 
  Country: None (occurrence: None)
  Receive Date: 20100803
  Receipt Date: 20100722
  Transmission Date: 20110219
  Serious: Yes (Other)
  Sender: FDA-Public Use
  Company Number: PHFR2010GB01527

PATIENT
  Sex: Female

DRUGS (9)
  1. CLOZARIL [Suspect]
     Indication: SCHIZOPHRENIA
     Dosage: UNK
     Route: 048
     Dates: start: 20031121
  2. RABEPRAZOLE SODIUM [Concomitant]
     Indication: DYSPEPSIA
     Dosage: 20 MG
     Route: 048
     Dates: start: 20020822
  3. ATORVASTATIN [Concomitant]
     Indication: DIABETES MELLITUS
     Dosage: 30 MG
     Route: 048
     Dates: start: 20041224
  4. ACETYLSALICYLIC ACID SRT [Concomitant]
     Indication: ANGINA PECTORIS
     Dosage: 75 MG
     Route: 048
     Dates: start: 20040213
  5. PAROXETINE HCL [Concomitant]
     Indication: DEPRESSION
     Dosage: 40 MG
     Route: 048
     Dates: start: 19930831
  6. DOCUSATE [Concomitant]
     Dosage: 200 MG, BID
     Route: 048
     Dates: start: 20031023
  7. PROCYCLIDINE HYDROCHLORIDE 2MG TAB [Concomitant]
     Dosage: 5 MG, QD
     Route: 048
     Dates: start: 20080403
  8. TERBINAFINE HCL [Concomitant]
     Dosage: UNK, PRN
     Dates: start: 20070831
  9. TIMODINE ^LLOYD^ [Concomitant]
     Dosage: UNK, PRN
     Dates: start: 20061103

REACTIONS (1)
  - BARRETT'S OESOPHAGUS [None]
